FAERS Safety Report 17200990 (Version 1)
Quarter: 2019Q4

REPORT INFORMATION
  Report Type: Spontaneous
  Country: DK (occurrence: DK)
  Receive Date: 20191226
  Receipt Date: 20191226
  Transmission Date: 20200122
  Serious: Yes (Life-Threatening)
  Sender: FDA-Public Use
  Company Number: DK-ROCHE-2500848

PATIENT
  Age: 41 Year
  Sex: Female

DRUGS (4)
  1. KLORZOXAZON [Concomitant]
     Active Substance: CHLORZOXAZONE
     Indication: MUSCLE RELAXANT THERAPY
     Dosage: STYRKE: 250 MG
     Route: 048
     Dates: start: 20190828
  2. IBUMETIN [Concomitant]
     Active Substance: IBUPROFEN
     Indication: PAIN
     Dosage: STYRKE: 400 MG
     Route: 048
     Dates: start: 20190724
  3. PREDNISOLON [PREDNISOLONE] [Concomitant]
     Active Substance: PREDNISOLONE
     Indication: ADRENOCORTICAL STEROID THERAPY
     Dosage: STYRKE: 25 MG
     Route: 048
     Dates: start: 20150107
  4. CELLCEPT [Suspect]
     Active Substance: MYCOPHENOLATE MOFETIL\MYCOPHENOLATE MOFETIL HYDROCHLORIDE
     Indication: ILL-DEFINED DISORDER
     Dosage: STYRKE: 500 MG
     Route: 048
     Dates: start: 20191125, end: 20191125

REACTIONS (4)
  - Angioedema [Not Recovered/Not Resolved]
  - Abdominal distension [Not Recovered/Not Resolved]
  - Dysphonia [Not Recovered/Not Resolved]
  - Pharyngeal swelling [Not Recovered/Not Resolved]

NARRATIVE: CASE EVENT DATE: 20191125
